FAERS Safety Report 6562011-X (Version None)
Quarter: 2010Q1

REPORT INFORMATION
  Report Type: 
  Country: None (occurrence: None)
  Receive Date: 20100130
  Receipt Date: 20091209
  Transmission Date: 20100710
  Serious: No
  Sender: FDA-Public Use
  Company Number: PR-ABBOTT-09P-131-0613646-00

PATIENT
  Age: 32 Year
  Sex: Male

DRUGS (1)
  1. HUMIRA [Suspect]
     Indication: CROHN'S DISEASE
     Dosage: 1 PEN EVERY 15 DAYS
     Route: 058
     Dates: start: 20080101

REACTIONS (3)
  - PRURITUS [None]
  - RASH [None]
  - SKIN LESION [None]
